FAERS Safety Report 23438057 (Version 1)
Quarter: 2024Q1

REPORT INFORMATION
  Report Type: Spontaneous
  Country: IT (occurrence: IT)
  Receive Date: 20240124
  Receipt Date: 20240124
  Transmission Date: 20240410
  Serious: Yes (Hospitalization)
  Sender: FDA-Public Use
  Company Number: IT-UCBSA-2024001376

PATIENT
  Age: 2 Year
  Sex: Male

DRUGS (1)
  1. LEVETIRACETAM [Suspect]
     Active Substance: LEVETIRACETAM
     Indication: PCDH19 gene-related epilepsy
     Dosage: UNK
     Route: 065

REACTIONS (3)
  - Hypertensive crisis [Unknown]
  - Drug ineffective for unapproved indication [Unknown]
  - Off label use [Unknown]
